FAERS Safety Report 6647456-1 (Version None)
Quarter: 2010Q1

REPORT INFORMATION
  Report Type: 
  Country: None (occurrence: None)
  Receive Date: 20100323
  Receipt Date: 20100323
  Transmission Date: 20100710
  Serious: Yes (Other)
  Sender: FDA-Public Use
  Company Number: None

PATIENT
  Age: 17 Year
  Sex: Male
  Weight: 77.1115 kg

DRUGS (1)
  1. ZYRTEC [Suspect]
     Dosage: 10 MG ONCE AT NIGH

REACTIONS (2)
  - PAIN [None]
  - PRURITUS GENERALISED [None]
